FAERS Safety Report 10214472 (Version 1)
Quarter: 2014Q2

REPORT INFORMATION
  Report Type: Spontaneous
  Country: US (occurrence: None)
  Receive Date: 20140602
  Receipt Date: 20140602
  Transmission Date: 20141212
  Serious: No
  Sender: FDA-Public Use
  Company Number: None

PATIENT
  Age: 76 Year
  Sex: Female
  Weight: 84.37 kg

DRUGS (1)
  1. TORISEL (TEMSIROLIMUS) 25 MG PFIZER [Suspect]
     Indication: METASTATIC RENAL CELL CARCINOMA
     Dosage: PER OFFICE REGIMEN ?PER OFFICE REGIMEN?INTRAVENOUS
     Route: 042
     Dates: start: 20140401, end: 20140428

REACTIONS (6)
  - Asthenia [None]
  - Dehydration [None]
  - Dizziness [None]
  - Tremor [None]
  - Gait disturbance [None]
  - Muscular weakness [None]
